FAERS Safety Report 4634076-3 (Version None)
Quarter: 2005Q2

REPORT INFORMATION
  Report Type: 
  Country: None (occurrence: None)
  Receive Date: 20050413
  Receipt Date: 20050405
  Transmission Date: 20051028
  Serious: Yes (Other)
  Sender: FDA-Public Use
  Company Number: GB-ROCHE-401176

PATIENT
  Sex: Male

DRUGS (1)
  1. FUZEON [Suspect]
     Dosage: FORM: POWDER + SOLVENT FOR INJECTION
     Route: 065

REACTIONS (2)
  - ANAEMIA [None]
  - IMMUNE RECONSTITUTION SYNDROME [None]
